FAERS Safety Report 9120472 (Version 2)
Quarter: 2013Q1

REPORT INFORMATION
  Report Type: Spontaneous
  Country: JP (occurrence: JP)
  Receive Date: 20130226
  Receipt Date: 20130307
  Transmission Date: 20140127
  Serious: No
  Sender: FDA-Public Use
  Company Number: JP-ABBOTT-13P-087-1032416-00

PATIENT
  Sex: Female
  Weight: 58 kg

DRUGS (10)
  1. HUMIRA [Suspect]
     Indication: PSORIASIS
     Route: 058
     Dates: start: 20110906, end: 20110906
  2. HUMIRA [Suspect]
     Route: 058
     Dates: start: 20110920, end: 20120322
  3. HUMIRA [Suspect]
     Route: 058
     Dates: start: 20120412, end: 20120621
  4. HUMIRA [Suspect]
     Route: 058
     Dates: start: 20120705, end: 20121109
  5. CLOBETASOL PROPIONATE [Concomitant]
     Indication: PSORIASIS
     Dosage: PRN, QS
     Route: 061
     Dates: start: 20110524
  6. CLOTRIMAZOLE [Concomitant]
     Indication: CANDIDA INFECTION
     Dosage: QS
     Route: 061
     Dates: start: 20110524
  7. CLOTRIMAZOLE [Concomitant]
     Indication: ANTIFUNGAL PROPHYLAXIS
  8. CLOTRIMAZOLE [Concomitant]
     Indication: ONYCHOMYCOSIS
  9. BETAMETHASONE BUTYRATE PROPIONATE [Concomitant]
     Indication: PSORIASIS
     Dosage: PRN, QS
     Route: 061
     Dates: start: 20110524
  10. MAXACALCITOL [Concomitant]
     Indication: PSORIASIS
     Dosage: PRN, QS
     Route: 061
     Dates: start: 20110524

REACTIONS (2)
  - Rash pustular [Not Recovered/Not Resolved]
  - Pustular psoriasis [Not Recovered/Not Resolved]
